FAERS Safety Report 9252699 (Version 1)
Quarter: 2013Q2

REPORT INFORMATION
  Report Type: Spontaneous
  Country: ES (occurrence: ES)
  Receive Date: 20130424
  Receipt Date: 20130424
  Transmission Date: 20140414
  Serious: Yes (Death, Life-Threatening, Hospitalization)
  Sender: FDA-Public Use
  Company Number: ES-ELI_LILLY_AND_COMPANY-ES201304004392

PATIENT
  Age: 80 Year
  Sex: Female
  Weight: 60 kg

DRUGS (9)
  1. FORSTEO [Suspect]
     Indication: OSTEOPOROSIS
     Dosage: 20 UG, QD
     Route: 058
     Dates: start: 20130127, end: 201304
  2. DIANBEN [Concomitant]
     Indication: TYPE 2 DIABETES MELLITUS
     Dosage: UNK, BID
     Route: 048
  3. REPAGLINIDE [Concomitant]
     Indication: TYPE 2 DIABETES MELLITUS
     Dosage: 1 MG, QD
     Route: 048
  4. PARACETAMOL W/TRAMADOL HYDROCHLORIDE [Concomitant]
     Indication: PAIN
     Dosage: UNK, OTHER
     Route: 048
  5. LORAZEPAM [Concomitant]
     Indication: DEPRESSION
     Dosage: 1 DF, QD
  6. PARACETAMOL [Concomitant]
     Indication: PAIN
     Dosage: 1 G, PRN
     Route: 048
  7. LANSOPRAZOL [Concomitant]
     Indication: GASTRITIS PROPHYLAXIS
     Dosage: UNK, OTHER
     Route: 048
  8. TRIPTIZOL [Concomitant]
     Indication: DEPRESSION
     Dosage: 1 DF, QD
     Route: 048
  9. NOCTAMID [Concomitant]
     Indication: INSOMNIA
     Dosage: 1 DF, QD
     Route: 048

REACTIONS (4)
  - Respiratory disorder [Fatal]
  - Fibrosis [Unknown]
  - Pneumonia [Unknown]
  - Malaise [Unknown]
